FAERS Safety Report 10104893 (Version 2)
Quarter: 2014Q3

REPORT INFORMATION
  Report Type: Other
  Country: US (occurrence: US)
  Receive Date: 20140424
  Receipt Date: 20140821
  Transmission Date: 20150326
  Serious: Yes (Hospitalization, Other)
  Sender: FDA-Public Use
  Company Number: US-GSKPPD-2014GSK003178

PATIENT
  Age: 74 Year
  Sex: Female

DRUGS (4)
  1. LASIX [Concomitant]
     Active Substance: FUROSEMIDE
  2. AVANDIA [Suspect]
     Active Substance: ROSIGLITAZONE MALEATE
     Indication: DIABETES MELLITUS
     Dosage: DATES OF AVANDIA USE COULD NOT BE CONFIRMED IN RECORDS REVIEWED
     Route: 048
  3. COUMADIN [Concomitant]
     Active Substance: WARFARIN SODIUM
  4. LOPRESSOR [Concomitant]
     Active Substance: METOPROLOL TARTRATE

REACTIONS (2)
  - Angina pectoris [Recovered/Resolved]
  - Myocardial infarction [None]

NARRATIVE: CASE EVENT DATE: 20040210
